FAERS Safety Report 4719434-0 (Version None)
Quarter: 2005Q3

REPORT INFORMATION
  Report Type: 
  Country: None (occurrence: None)
  Receive Date: 20050719
  Receipt Date: 20050704
  Transmission Date: 20060218
  Serious: Yes (Hospitalization)
  Sender: FDA-Public Use
  Company Number: ENT 2005-0093

PATIENT
  Age: 83 Year
  Sex: Female

DRUGS (5)
  1. COMTAN [Suspect]
     Indication: PARKINSON'S DISEASE
     Dosage: 200 MG; ORAL
     Route: 048
     Dates: start: 20050501
  2. FLORINEF [Concomitant]
  3. PROLOPA [Concomitant]
  4. MANTADAN [Concomitant]
  5. ESPIRONOLACTONA (SPIRONOLACTONE) [Concomitant]

REACTIONS (6)
  - ABNORMAL BEHAVIOUR [None]
  - ACTIVITIES OF DAILY LIVING IMPAIRED [None]
  - COGNITIVE DISORDER [None]
  - DEMENTIA [None]
  - DYSPHAGIA [None]
  - MENTAL STATUS CHANGES [None]
